FAERS Safety Report 4610357-4 (Version None)
Quarter: 2005Q1

REPORT INFORMATION
  Report Type: 
  Country: None (occurrence: None)
  Receive Date: 20050314
  Receipt Date: 20050301
  Transmission Date: 20050727
  Serious: Yes (Death)
  Sender: FDA-Public Use
  Company Number: S05-USA-00397-01

PATIENT
  Age: 29 Year
  Sex: Female
  Weight: 86.1834 kg

DRUGS (7)
  1. NAMENDA [Suspect]
     Indication: BIPOLAR DISORDER
     Dates: start: 20040101, end: 20050101
  2. BIRTH CONTROL PILLS [Concomitant]
  3. ACIPHEX [Concomitant]
  4. KLONOPIN [Concomitant]
  5. GEODON [Concomitant]
  6. PROZAC (FLUOXETINE HYDROCHLOLRIDE) [Concomitant]
  7. NEURONTIN [Concomitant]

REACTIONS (2)
  - CARDIAC FAILURE CONGESTIVE [None]
  - DIZZINESS [None]
